FAERS Safety Report 6095378-X (Version None)
Quarter: 2009Q1

REPORT INFORMATION
  Report Type: 
  Country: None (occurrence: None)
  Receive Date: 20090227
  Receipt Date: 20080319
  Transmission Date: 20090719
  Serious: No
  Sender: FDA-Public Use
  Company Number: A0716452A

PATIENT
  Age: 78 Year
  Sex: Male
  Weight: 120.9 kg

DRUGS (9)
  1. LAMICTAL [Suspect]
     Indication: BIPOLAR DISORDER
     Dosage: 25MG PER DAY
     Route: 048
     Dates: start: 20080312, end: 20080318
  2. PROTONIX [Concomitant]
  3. COZAAR [Concomitant]
  4. ARANESP [Concomitant]
  5. CALCITRIOL [Concomitant]
  6. COSOPT [Concomitant]
  7. VITAMIN D [Concomitant]
  8. PREDNISONE [Concomitant]
     Route: 047
  9. LORAZEPAM [Concomitant]

REACTIONS (1)
  - RASH [None]
